FAERS Safety Report 8960572 (Version 3)
Quarter: 2013Q1

REPORT INFORMATION
  Report Type: Spontaneous
  Country: US (occurrence: None)
  Receive Date: 20121203
  Receipt Date: 20130131
  Transmission Date: 20140127
  Serious: Yes (Other)
  Sender: FDA-Public Use
  Company Number: DKLU1086655

PATIENT
  Age: 7 Month
  Sex: Female
  Weight: 6.8 kg

DRUGS (7)
  1. SABRIL [Suspect]
     Indication: INFANTILE SPASMS
     Route: 048
     Dates: start: 20121026
  2. KEPPRA (LEVETIRACETAM) [Suspect]
     Indication: CONVULSION
     Route: 048
     Dates: start: 20121112
  3. ACTH [Suspect]
     Indication: INFANTILE SPASMS
     Route: 048
     Dates: start: 20121006, end: 20121105
  4. CLONAZEPAM (CLONAZEPAM) (CLONAZEPAM) [Concomitant]
  5. ZONEGRAN (ZONISAMIDE) [Concomitant]
  6. PEPCID (FAMOTIDINE) [Concomitant]
  7. POLYETHYLENE GLYCOL (MACROGOL) [Concomitant]

REACTIONS (7)
  - Haematochezia [None]
  - Eye movement disorder [None]
  - Seizure cluster [None]
  - Movement disorder [None]
  - Hemiparesis [None]
  - Muscle spasms [None]
  - Constipation [None]
